FAERS Safety Report 7530567-6 (Version None)
Quarter: 2011Q2

REPORT INFORMATION
  Report Type: 
  Country: None (occurrence: None)
  Receive Date: 20110607
  Receipt Date: 20110531
  Transmission Date: 20111010
  Serious: Yes (Other)
  Sender: FDA-Public Use
  Company Number: US-SANOFI-AVENTIS-2011SA029043

PATIENT
  Sex: Male

DRUGS (2)
  1. LANTUS [Suspect]
     Dosage: DOSE:40 UNIT(S)
     Route: 058
  2. APIDRA [Suspect]
     Route: 058

REACTIONS (5)
  - WRONG DRUG ADMINISTERED [None]
  - TONGUE BITING [None]
  - LIP INJURY [None]
  - MYALGIA [None]
  - LOSS OF CONSCIOUSNESS [None]
